FAERS Safety Report 24052816 (Version 2)
Quarter: 2024Q3

REPORT INFORMATION
  Report Type: Spontaneous
  Country: ZA (occurrence: ZA)
  Receive Date: 20240705
  Receipt Date: 20240712
  Transmission Date: 20241016
  Serious: Yes (Other)
  Sender: GLENMARK
  Company Number: ZA-GLENMARK PHARMACEUTICALS-2024GMK091942

PATIENT

DRUGS (1)
  1. POTASSIUM HYDROXIDE [Suspect]
     Active Substance: POTASSIUM HYDROXIDE
     Indication: Molluscum contagiosum
     Dosage: UNK
     Route: 061
     Dates: start: 20240624, end: 20240624

REACTIONS (2)
  - Skin ulcer [Unknown]
  - Application site pain [Unknown]

NARRATIVE: CASE EVENT DATE: 20240624
